FAERS Safety Report 4566378-3 (Version None)
Quarter: 2005Q1

REPORT INFORMATION
  Report Type: 
  Country: None (occurrence: None)
  Receive Date: 20050126
  Receipt Date: 20050126
  Transmission Date: 20050727
  Serious: Yes (Hospitalization)
  Sender: FDA-Public Use
  Company Number: None

PATIENT
  Sex: Male
  Weight: 78.4723 kg

DRUGS (9)
  1. IRESSA [Suspect]
     Indication: ADENOCARCINOMA PANCREAS
     Dosage: 250 MG   DAILY   ORAL
     Route: 048
     Dates: start: 20041113, end: 20050125
  2. PACLITAXEL [Suspect]
     Indication: ADENOCARCINOMA PANCREAS
     Dosage: 85 MG   WEEKLY   INTRAVENOU
     Route: 042
     Dates: start: 20041122, end: 20041229
  3. ENSURE PLUS [Concomitant]
  4. ATENOLOL [Concomitant]
  5. PROCHLORPERAZINE MALEATE [Concomitant]
  6. ATROPOINE/ DIPHENOXYLATE [Concomitant]
  7. CHOLESTYRAMINE [Concomitant]
  8. CLOTRIMAZOLE [Concomitant]
  9. LORAZEPAM [Concomitant]

REACTIONS (12)
  - ANOREXIA [None]
  - ASTHENIA [None]
  - DIARRHOEA [None]
  - DIZZINESS [None]
  - HAEMATOCRIT DECREASED [None]
  - HAEMOGLOBIN DECREASED [None]
  - HEART RATE INCREASED [None]
  - HYPOTENSION [None]
  - NAUSEA [None]
  - RECTAL HAEMORRHAGE [None]
  - VOMITING [None]
  - WEIGHT DECREASED [None]
